FAERS Safety Report 16322492 (Version 3)
Quarter: 2019Q2

REPORT INFORMATION
  Report Type: Spontaneous
  Country: US (occurrence: US)
  Receive Date: 20190516
  Receipt Date: 20190612
  Transmission Date: 20190711
  Serious: Yes (Hospitalization)
  Sender: FDA-Public Use
  Company Number: US-VERTEX PHARMACEUTICALS-2019-004319

PATIENT
  Age: 41 Year
  Sex: Male

DRUGS (6)
  1. MYCOPHENOLATE [Concomitant]
     Active Substance: MYCOPHENOLIC ACID
  2. NOVOLIN N [Concomitant]
     Active Substance: INSULIN HUMAN
  3. IPRATROPIUM [Concomitant]
     Active Substance: IPRATROPIUM
  4. SYMDEKO [Suspect]
     Active Substance: IVACAFTOR\TEZACAFTOR
     Indication: CYSTIC FIBROSIS
     Dosage: 100/150 MG AM; 100 MG PM
     Route: 048
     Dates: start: 20180504
  5. PULMOZYME [Suspect]
     Active Substance: DORNASE ALFA
     Indication: PRODUCT USED FOR UNKNOWN INDICATION
     Dosage: 1 VIAL, BID
     Route: 055
  6. LINZESS [Concomitant]
     Active Substance: LINACLOTIDE

REACTIONS (1)
  - Lung transplant [Recovered/Resolved]

NARRATIVE: CASE EVENT DATE: 20190311
